FAERS Safety Report 7277773-6 (Version None)
Quarter: 2011Q1

REPORT INFORMATION
  Report Type: 
  Country: None (occurrence: None)
  Receive Date: 20110207
  Receipt Date: 20100707
  Transmission Date: 20110831
  Serious: No
  Sender: FDA-Public Use
  Company Number: A0868942A

PATIENT
  Age: 24 Year
  Sex: Female

DRUGS (2)
  1. ORTHO EVRA [Concomitant]
  2. OLUX E FOAM (EMULSION AEROSOL FOAM) [Suspect]
     Indication: PSORIASIS
     Dosage: 1APP THREE TIMES PER DAY
     Route: 061
     Dates: start: 20100218, end: 20100301

REACTIONS (2)
  - DRUG INEFFECTIVE [None]
  - HAIR DISORDER [None]
